FAERS Safety Report 20909525 (Version 1)
Quarter: 2022Q2

REPORT INFORMATION
  Report Type: Spontaneous
  Country: JP (occurrence: JP)
  Receive Date: 20220603
  Receipt Date: 20220603
  Transmission Date: 20220721
  Serious: Yes (Other)
  Sender: FDA-Public Use
  Company Number: JP-BRISTOL-MYERS SQUIBB COMPANY-2022-049992

PATIENT

DRUGS (3)
  1. ELIQUIS [Suspect]
     Active Substance: APIXABAN
     Indication: Thrombosis prophylaxis
  2. ELIQUIS [Suspect]
     Active Substance: APIXABAN
  3. ELIQUIS [Suspect]
     Active Substance: APIXABAN

REACTIONS (2)
  - Haemorrhage subcutaneous [Not Recovered/Not Resolved]
  - Renal impairment [Unknown]
